FAERS Safety Report 5913144-X (Version None)
Quarter: 2008Q4

REPORT INFORMATION
  Report Type: 
  Country: None (occurrence: None)
  Receive Date: 20081009
  Receipt Date: 20081003
  Transmission Date: 20090506
  Serious: Yes (Other)
  Sender: FDA-Public Use
  Company Number: US-JNJFOC-20081001117

PATIENT

DRUGS (1)
  1. REOPRO [Suspect]
     Indication: ANGIOPLASTY

REACTIONS (1)
  - THROMBOSIS IN DEVICE [None]
